FAERS Safety Report 5502065-2 (Version None)
Quarter: 2007Q4

REPORT INFORMATION
  Report Type: 
  Country: None (occurrence: None)
  Receive Date: 20071030
  Receipt Date: 20071025
  Transmission Date: 20080405
  Serious: Yes (Other)
  Sender: FDA-Public Use
  Company Number: JP-ASTRAZENECA-2007AP06713

PATIENT
  Age: 68 Year
  Sex: Male

DRUGS (2)
  1. DIPRIVAN [Suspect]
     Indication: SEDATION
     Dosage: DOSE UNKNOWN
     Route: 008
  2. EPHEDRIN [Concomitant]
     Dosage: DOSE UNKNOWN

REACTIONS (1)
  - CEREBRAL INFARCTION [None]
